FAERS Safety Report 12469487 (Version 4)
Quarter: 2016Q3

REPORT INFORMATION
  Report Type: Spontaneous
  Country: US (occurrence: US)
  Receive Date: 20160615
  Receipt Date: 20160823
  Transmission Date: 20161109
  Serious: Yes (Other)
  Sender: FDA-Public Use
  Company Number: US-ACTELION-A-NJ2016-137353

PATIENT
  Age: 69 Year
  Sex: Female

DRUGS (4)
  1. UPTRAVI [Suspect]
     Active Substance: SELEXIPAG
     Indication: PULMONARY ARTERIAL HYPERTENSION
     Dosage: 200 MCG, BID
     Route: 048
     Dates: start: 20160526
  2. OPSUMIT [Suspect]
     Active Substance: MACITENTAN
     Indication: PULMONARY ARTERIAL HYPERTENSION
     Dosage: 10 MG, QD
     Route: 048
     Dates: start: 20160122
  3. ELIQUIS [Concomitant]
     Active Substance: APIXABAN
  4. ADCIRCA [Concomitant]
     Active Substance: TADALAFIL

REACTIONS (9)
  - Migraine [Unknown]
  - Spinal operation [Unknown]
  - Neuropathy peripheral [Unknown]
  - Pain [Unknown]
  - Palpitations [Unknown]
  - Nausea [Unknown]
  - Hypoaesthesia [Unknown]
  - Blood pressure increased [Unknown]
  - Headache [Unknown]

NARRATIVE: CASE EVENT DATE: 20160526
